FAERS Safety Report 10103556 (Version 1)
Quarter: 2014Q2

REPORT INFORMATION
  Report Type: Spontaneous
  Country: GB (occurrence: GB)
  Receive Date: 20140424
  Receipt Date: 20140424
  Transmission Date: 20141212
  Serious: Yes (Other)
  Sender: FDA-Public Use
  Company Number: GB-IAC JAPAN XML-GBR-2014-0018039

PATIENT
  Sex: Male

DRUGS (1)
  1. BUTRANS 20MG TRANSDERMAL PATCH [Suspect]
     Indication: PAIN
     Dosage: 20 MCG, Q1H
     Route: 062

REACTIONS (5)
  - Application site haemorrhage [Not Recovered/Not Resolved]
  - Product adhesion issue [Not Recovered/Not Resolved]
  - Application site vesicles [Not Recovered/Not Resolved]
  - Application site oedema [Not Recovered/Not Resolved]
  - Erythema [Not Recovered/Not Resolved]
